FAERS Safety Report 15171628 (Version 2)
Quarter: 2018Q4

REPORT INFORMATION
  Report Type: Report from Study
  Country: BR (occurrence: BR)
  Receive Date: 20180720
  Receipt Date: 20181002
  Transmission Date: 20190204
  Serious: Yes (Hospitalization, Other)
  Sender: FDA-Public Use
  Company Number: BR-SA-2018SA186790

PATIENT
  Sex: Male
  Weight: 78 kg

DRUGS (3)
  1. HEPA-MERZ [ORNITHINE ASPARTATE] [Concomitant]
     Indication: NEOPLASM MALIGNANT
     Dosage: 1 TABLET IN THE MORNING AND 1 TABLET AT NIGHT
     Route: 065
  2. NEXAVAR [Concomitant]
     Active Substance: SORAFENIB
     Indication: NEOPLASM MALIGNANT
     Dosage: 1 TABLET IN THE MORNING AND 1 TABLET AT NIGHT
     Route: 065
  3. INSULIN GLARGINE [Suspect]
     Active Substance: INSULIN GLARGINE
     Indication: TYPE 2 DIABETES MELLITUS
     Dosage: 25 U, QD
     Route: 058
     Dates: start: 201803

REACTIONS (3)
  - Blood glucose increased [Recovered/Resolved]
  - Hepatic cirrhosis [Recovering/Resolving]
  - Metabolic disorder [Recovering/Resolving]
